FAERS Safety Report 12412613 (Version 4)
Quarter: 2016Q2

REPORT INFORMATION
  Report Type: Spontaneous
  Country: JP (occurrence: JP)
  Receive Date: 20160527
  Receipt Date: 20160615
  Transmission Date: 20160815
  Serious: Yes (Hospitalization, Other)
  Sender: FDA-Public Use
  Company Number: PHJP2016JP013591

PATIENT
  Age: 82 Year
  Sex: Male

DRUGS (1)
  1. ZOMETA [Suspect]
     Active Substance: ZOLEDRONIC ACID
     Indication: METASTASES TO BONE
     Dosage: 4 MG, UNK
     Route: 041
     Dates: start: 20100804, end: 20121018

REACTIONS (13)
  - Erythema [Unknown]
  - Swelling [Unknown]
  - Exposed bone in jaw [Unknown]
  - Jaw fracture [Unknown]
  - Osteonecrosis of jaw [Not Recovered/Not Resolved]
  - Bacterial infection [Unknown]
  - Fistula [Unknown]
  - Pain [Unknown]
  - Feeding disorder [Unknown]
  - Mouth haemorrhage [Unknown]
  - Purulence [Unknown]
  - Bone loss [Unknown]
  - Haemoglobin decreased [Unknown]

NARRATIVE: CASE EVENT DATE: 20121105
